FAERS Safety Report 7297903-X (Version None)
Quarter: 2011Q1

REPORT INFORMATION
  Report Type: 
  Country: None (occurrence: None)
  Receive Date: 20110217
  Receipt Date: 20101224
  Transmission Date: 20110831
  Serious: No
  Sender: FDA-Public Use
  Company Number: US-KINGPHARMUSA00001-K201001556

PATIENT
  Age: 61 Year
  Sex: Female
  Weight: 63.492 kg

DRUGS (3)
  1. ADVIL [Concomitant]
     Indication: PAIN
     Dosage: 2 DF, PRN
     Route: 048
  2. FLECTOR [Suspect]
     Indication: SCIATICA
     Dosage: 1 PATCH, FOR 12-24H  PRN
     Route: 061
     Dates: start: 20090101
  3. FLECTOR [Suspect]
     Indication: POST HERPETIC NEURALGIA

REACTIONS (12)
  - GAIT DISTURBANCE [None]
  - APPLICATION SITE VESICLES [None]
  - ERYTHEMA [None]
  - RASH [None]
  - APPLICATION SITE NODULE [None]
  - PRURITUS [None]
  - PAIN IN EXTREMITY [None]
  - CHEMICAL INJURY [None]
  - WOUND [None]
  - CELLULITIS [None]
  - WOUND INFECTION [None]
  - WRONG TECHNIQUE IN DRUG USAGE PROCESS [None]
